FAERS Safety Report 15317994 (Version 1)
Quarter: 2018Q3

REPORT INFORMATION
  Report Type: Report from Study
  Country: CA (occurrence: CA)
  Receive Date: 20180824
  Receipt Date: 20180824
  Transmission Date: 20181010
  Serious: Yes (Other)
  Sender: FDA-Public Use
  Company Number: PHHY2013CA043412

PATIENT
  Sex: Male

DRUGS (2)
  1. TASIGNA [Suspect]
     Active Substance: NILOTINIB
     Indication: CHRONIC MYELOID LEUKAEMIA
     Dosage: 300 MG, BID
     Route: 048
     Dates: start: 201204
  2. TASIGNA [Suspect]
     Active Substance: NILOTINIB
     Dosage: 400 MG, BID
     Route: 048
     Dates: start: 201204

REACTIONS (17)
  - Dry eye [Recovering/Resolving]
  - Tongue disorder [Unknown]
  - Pruritus [Unknown]
  - Photosensitivity reaction [Unknown]
  - Facial paralysis [Recovering/Resolving]
  - Irritability [Unknown]
  - Paraesthesia [Recovered/Resolved]
  - Foreign body in eye [Unknown]
  - Blood glucose increased [Unknown]
  - Diplopia [Unknown]
  - Erythema [Unknown]
  - Blood cholesterol increased [Unknown]
  - Weight decreased [Unknown]
  - Vision blurred [Recovered/Resolved]
  - Eye disorder [Unknown]
  - Hypoaesthesia [Recovered/Resolved]
  - Tinnitus [Unknown]

NARRATIVE: CASE EVENT DATE: 2016
